FAERS Safety Report 8575019-X (Version None)
Quarter: 2012Q3

REPORT INFORMATION
  Report Type: 
  Country: None (occurrence: None)
  Receive Date: 20120807
  Receipt Date: 20120730
  Transmission Date: 20120928
  Serious: Yes (Hospitalization)
  Sender: FDA-Public Use
  Company Number: US-ELI_LILLY_AND_COMPANY-US201208000115

PATIENT
  Sex: Female

DRUGS (8)
  1. FORTEO [Suspect]
     Indication: OSTEOPOROSIS
     Dosage: 20 UG, QD
  2. LEVOTHYROXINE SODIUM [Concomitant]
     Indication: THYROID DISORDER
  3. POTASSIUM CITRATE [Concomitant]
     Dosage: 10 MG, QD
  4. CARDIZEM [Concomitant]
  5. VITAMIN TAB [Concomitant]
  6. OMEPRAZOLE [Concomitant]
  7. PREMARIN [Concomitant]
  8. FORTEO [Suspect]
     Dosage: 20 UG, QD
     Dates: start: 20120723

REACTIONS (7)
  - NEPHROLITHIASIS [None]
  - URINE POTASSIUM DECREASED [None]
  - NAUSEA [None]
  - URINARY TRACT OPERATION [None]
  - INFECTION [None]
  - HEADACHE [None]
  - BONE DENSITY DECREASED [None]
